FAERS Safety Report 18077240 (Version 1)
Quarter: 2020Q3

REPORT INFORMATION
  Report Type: Spontaneous
  Country: CH (occurrence: AU)
  Receive Date: 20200728
  Receipt Date: 20200728
  Transmission Date: 20201103
  Serious: Yes (Other)
  Sender: FDA-Public Use
  Company Number: CH-AMGEN-AUSSP2020118826

PATIENT

DRUGS (1)
  1. NEULASTA [Suspect]
     Active Substance: PEGFILGRASTIM
     Indication: PRODUCT USED FOR UNKNOWN INDICATION
     Dosage: 6 MILLIGRAM 42 DAYS WASHOUT BETWEEN DOSES
     Route: 058
     Dates: start: 2017

REACTIONS (18)
  - Anaphylactic reaction [Unknown]
  - Upper respiratory tract infection [Unknown]
  - Myalgia [Unknown]
  - Leukocytosis [Unknown]
  - Injection site pain [Unknown]
  - Pericarditis [Unknown]
  - Injection site bruising [Unknown]
  - Headache [Unknown]
  - Nausea [Unknown]
  - Hypersensitivity [Unknown]
  - Bone pain [Unknown]
  - Neutropenia [Unknown]
  - Abdominal pain [Unknown]
  - Palpitations [Unknown]
  - Musculoskeletal pain [Unknown]
  - Back pain [Unknown]
  - Adverse event [Unknown]
  - Abdominal pain upper [Unknown]
